FAERS Safety Report 13385093 (Version 1)
Quarter: 2017Q1

REPORT INFORMATION
  Report Type: Spontaneous
  Country: US (occurrence: US)
  Receive Date: 20170329
  Receipt Date: 20170329
  Transmission Date: 20170429
  Serious: Yes (Hospitalization)
  Sender: FDA-Public Use
  Company Number: US-BEH-2017079201

PATIENT
  Age: 44 Year
  Sex: Female
  Weight: 56.69 kg

DRUGS (22)
  1. HIZENTRA [Suspect]
     Active Substance: HUMAN IMMUNOGLOBULIN G
     Indication: SELECTIVE IGG SUBCLASS DEFICIENCY
     Dosage: 6 G, UNK
     Route: 058
     Dates: start: 20150602
  2. HIZENTRA [Suspect]
     Active Substance: HUMAN IMMUNOGLOBULIN G
     Dosage: UNK
     Route: 058
  3. SINGULAIR [Concomitant]
     Active Substance: MONTELUKAST SODIUM
  4. FERROUS SULFATE. [Concomitant]
     Active Substance: FERROUS SULFATE
  5. PROAIR HFA [Concomitant]
     Active Substance: ALBUTEROL SULFATE
  6. BACTROBAN [Concomitant]
     Active Substance: MUPIROCIN\MUPIROCIN CALCIUM
     Route: 045
  7. GARLIC                             /01570501/ [Concomitant]
     Active Substance: GARLIC
  8. PULMICORT TURBUHALER [Concomitant]
     Active Substance: BUDESONIDE
  9. NEXIUM [Concomitant]
     Active Substance: ESOMEPRAZOLE MAGNESIUM
  10. CLOTRIMAZOLE. [Concomitant]
     Active Substance: CLOTRIMAZOLE
  11. ADVAIR HFA [Concomitant]
     Active Substance: FLUTICASONE PROPIONATE\SALMETEROL XINAFOATE
  12. MUCINEX [Concomitant]
     Active Substance: GUAIFENESIN
  13. LEVAQUIN [Concomitant]
     Active Substance: LEVOFLOXACIN
  14. ALLEGRA-D [Concomitant]
     Active Substance: FEXOFENADINE\PSEUDOEPHEDRINE
  15. MULTIGEN-AL [Concomitant]
  16. DOXYCYCLINE HYCLATE. [Concomitant]
     Active Substance: DOXYCYCLINE HYCLATE
  17. HIZENTRA [Suspect]
     Active Substance: HUMAN IMMUNOGLOBULIN G
     Dosage: UNK
     Route: 058
  18. DIFLUCAN [Concomitant]
     Active Substance: FLUCONAZOLE
  19. BIAXIN [Concomitant]
     Active Substance: CLARITHROMYCIN
  20. CITRACAL D FORT [Concomitant]
  21. AIRBORNE [Concomitant]
     Active Substance: HERBALS\MINERALS\VITAMINS
  22. LOESTRIN FE                        /00000701/ [Concomitant]

REACTIONS (2)
  - Pseudomonas infection [Unknown]
  - Meningitis cryptococcal [Unknown]

NARRATIVE: CASE EVENT DATE: 20170228
